FAERS Safety Report 8632899 (Version 5)
Quarter: 2013Q3

REPORT INFORMATION
  Report Type: Report from Study
  Country: JP (occurrence: JP)
  Receive Date: 20120625
  Receipt Date: 20130814
  Transmission Date: 20140515
  Serious: Yes (Other)
  Sender: FDA-Public Use
  Company Number: PHHY2012JP052928

PATIENT
  Age: 44 Year
  Sex: Male
  Weight: 99 kg

DRUGS (9)
  1. FTY 720 [Suspect]
     Indication: MULTIPLE SCLEROSIS
     Dosage: 0.5 MG, QD
     Route: 048
     Dates: start: 20120229
  2. ZYPREXA [Concomitant]
     Indication: SCHIZOPHRENIA
     Dosage: 5 MG, UNK
     Route: 048
  3. IMPROMEN [Concomitant]
     Indication: SCHIZOPHRENIA
     Dosage: 3 MG, UNK
     Route: 048
  4. AKINETON [Concomitant]
     Indication: PROPHYLAXIS
     Dosage: 1 MG, UNK
     Route: 048
  5. LENDORMIN [Concomitant]
     Dosage: 0.25 MG, UNK
  6. HALCION [Concomitant]
     Indication: INSOMNIA
     Dosage: 0.5 MG, UNK
     Route: 048
  7. METHYCOBAL [Concomitant]
     Dosage: 500 UG, UNK
     Route: 048
  8. TAKEPRON [Concomitant]
     Indication: PROPHYLAXIS
     Dosage: 15 MG, UNK
     Route: 048
  9. CALONAL [Concomitant]
     Indication: HEADACHE
     Dosage: 400 MG, UNK
     Route: 048

REACTIONS (3)
  - Lymphocyte count decreased [Unknown]
  - Hypertension [Unknown]
  - Neutrophil percentage increased [Unknown]
